FAERS Safety Report 8373008-1 (Version None)
Quarter: 2012Q2

REPORT INFORMATION
  Report Type: 
  Country: None (occurrence: None)
  Receive Date: 20120521
  Receipt Date: 20120403
  Transmission Date: 20120825
  Serious: No
  Sender: FDA-Public Use
  Company Number: US-ASTRAZENECA-2012SE22707

PATIENT
  Sex: Male

DRUGS (1)
  1. PRILOSEC OTC [Suspect]
     Route: 048
     Dates: start: 20120401, end: 20120401

REACTIONS (7)
  - CHEST DISCOMFORT [None]
  - DRUG HYPERSENSITIVITY [None]
  - CHEST PAIN [None]
  - CONFUSIONAL STATE [None]
  - DYSPNOEA [None]
  - DIZZINESS [None]
  - INAPPROPRIATE SCHEDULE OF DRUG ADMINISTRATION [None]
